FAERS Safety Report 6154875-9 (Version None)
Quarter: 2009Q2

REPORT INFORMATION
  Report Type: 
  Country: None (occurrence: None)
  Receive Date: 20090414
  Receipt Date: 20090402
  Transmission Date: 20091009
  Serious: Yes (Other)
  Sender: FDA-Public Use
  Company Number: JP-PFIZER INC-2009196520

PATIENT

DRUGS (4)
  1. CAMPTOSAR [Suspect]
     Dosage: 150 MG/M2
     Route: 041
     Dates: start: 20090218, end: 20090218
  2. CALCIUM LEVOFOLINATE [Concomitant]
     Dosage: UNK
     Route: 041
     Dates: start: 20090218, end: 20090218
  3. FLUOROURACIL [Concomitant]
     Dosage: UNK
     Route: 040
     Dates: start: 20090218, end: 20090218
  4. FLUOROURACIL [Concomitant]
     Dosage: UNK
     Route: 041
     Dates: start: 20090218, end: 20090218

REACTIONS (1)
  - NEUROPATHY PERIPHERAL [None]
